FAERS Safety Report 20093314 (Version 1)
Quarter: 2021Q4

REPORT INFORMATION
  Report Type: Spontaneous
  Country: US (occurrence: US)
  Receive Date: 20211120
  Receipt Date: 20211120
  Transmission Date: 20220303
  Serious: No
  Sender: FDA-Public Use
  Company Number: US-APOTEX-2021AP045245

PATIENT
  Age: 44 Year
  Sex: Male

DRUGS (1)
  1. FENTANYL [Suspect]
     Active Substance: FENTANYL
     Indication: Product used for unknown indication
     Dosage: UNK
     Route: 065

REACTIONS (5)
  - Lethargy [Recovering/Resolving]
  - Overdose [Recovering/Resolving]
  - Agitation [Recovering/Resolving]
  - Tremor [Recovering/Resolving]
  - Nausea [Recovering/Resolving]
